FAERS Safety Report 7241309-6 (Version None)
Quarter: 2011Q1

REPORT INFORMATION
  Report Type: 
  Country: None (occurrence: None)
  Receive Date: 20110124
  Receipt Date: 20110118
  Transmission Date: 20110831
  Serious: Yes (Hospitalization)
  Sender: FDA-Public Use
  Company Number: R0014866A

PATIENT
  Age: 69 Year
  Sex: Female

DRUGS (2)
  1. LAMOTRIGINE [Suspect]
     Indication: CONVULSION
     Dosage: 200MG PER DAY
     Route: 048
     Dates: start: 20100806
  2. BLINDED VACCINE [Suspect]
     Route: 030
     Dates: start: 20091123, end: 20091123

REACTIONS (3)
  - COGNITIVE DISORDER [None]
  - ATAXIA [None]
  - PYREXIA [None]
